FAERS Safety Report 21009714 (Version 1)
Quarter: 2022Q2

REPORT INFORMATION
  Report Type: Report from Study
  Country: US (occurrence: US)
  Receive Date: 20220627
  Receipt Date: 20220627
  Transmission Date: 20220720
  Serious: Yes (Hospitalization)
  Sender: FDA-Public Use
  Company Number: US-JNJFOC-20220638506

PATIENT
  Age: 18 Year
  Sex: Female

DRUGS (3)
  1. SPRAVATO [Suspect]
     Active Substance: ESKETAMINE
     Indication: Depression
     Dosage: 56 MG, 1 DOSE
     Dates: start: 20220517, end: 20220517
  2. SPRAVATO [Suspect]
     Active Substance: ESKETAMINE
     Dosage: 84 MG, 7 DOSES
     Dates: start: 20220519, end: 20220609
  3. SPRAVATO [Suspect]
     Active Substance: ESKETAMINE
     Dosage: 84 MG, 1 DOSE
     Dates: start: 20220616, end: 20220616

REACTIONS (2)
  - Suicide attempt [Recovered/Resolved]
  - Intentional overdose [Recovered/Resolved]

NARRATIVE: CASE EVENT DATE: 20220612
